FAERS Safety Report 15448430 (Version 3)
Quarter: 2018Q4

REPORT INFORMATION
  Report Type: Report from Study
  Country: None (occurrence: US)
  Receive Date: 20180929
  Receipt Date: 20181114
  Transmission Date: 20190204
  Serious: Yes (Hospitalization)
  Sender: FDA-Public Use
  Company Number: US-ABBVIE-18K-163-2408805-00

PATIENT
  Age: 51 Year
  Sex: Male
  Weight: 140.74 kg

DRUGS (5)
  1. CLARITIN [Concomitant]
     Active Substance: LORATADINE
     Indication: HYPERSENSITIVITY
     Route: 065
  2. MULTIVITAMIN [Concomitant]
     Active Substance: VITAMINS
     Indication: VITAMIN SUPPLEMENTATION
     Route: 065
  3. HUMIRA [Suspect]
     Active Substance: ADALIMUMAB
     Indication: CROHN^S DISEASE
     Route: 058
     Dates: start: 2016, end: 201807
  4. HUMIRA [Suspect]
     Active Substance: ADALIMUMAB
     Route: 058
     Dates: start: 201808
  5. LISINOPRIL. [Concomitant]
     Active Substance: LISINOPRIL
     Indication: HYPERTENSION
     Route: 065

REACTIONS (5)
  - Skin laceration [Recovered/Resolved]
  - Gait inability [Recovered/Resolved]
  - Localised infection [Unknown]
  - Wound infection [Unknown]
  - White blood cell count increased [Recovered/Resolved]

NARRATIVE: CASE EVENT DATE: 201806
